FAERS Safety Report 20210845 (Version 3)
Quarter: 2022Q2

REPORT INFORMATION
  Report Type: Report from Study
  Country: US (occurrence: US)
  Receive Date: 20211221
  Receipt Date: 20220408
  Transmission Date: 20220721
  Serious: Yes (Death, Life-Threatening, Hospitalization, Other)
  Sender: FDA-Public Use
  Company Number: US-NOVARTISPH-NVSC2021US223479

PATIENT
  Age: 55 Year
  Sex: Male
  Weight: 72.3 kg

DRUGS (9)
  1. SANDOSTATIN LAR DEPOT [Suspect]
     Active Substance: OCTREOTIDE ACETATE
     Indication: Neuroendocrine tumour
     Dosage: 30 MG, ONCE/SINGLE
     Route: 030
     Dates: start: 20210812, end: 20210812
  2. SANDOSTATIN LAR DEPOT [Suspect]
     Active Substance: OCTREOTIDE ACETATE
     Dosage: 60 MG, ONCE/SINGLE
     Route: 030
     Dates: start: 20210907, end: 20211013
  3. SANDOSTATIN LAR DEPOT [Suspect]
     Active Substance: OCTREOTIDE ACETATE
  4. AMARYL [Concomitant]
     Active Substance: GLIMEPIRIDE
     Indication: Diabetes mellitus
     Dosage: 1 MG, QD
     Route: 048
     Dates: start: 20210601
  5. LANTUS [Concomitant]
     Active Substance: INSULIN GLARGINE
     Indication: Diabetes mellitus
     Dosage: 10 DOSAGE FORM, BID
     Route: 058
     Dates: start: 20210601
  6. HUMALOG [Concomitant]
     Active Substance: INSULIN LISPRO
     Indication: Diabetes mellitus
     Dosage: 3 TO 8 DOSAGE FORM, TID
     Route: 058
     Dates: start: 20210601
  7. ESCITALOPRAM [Concomitant]
     Active Substance: ESCITALOPRAM OXALATE
     Indication: Depression
     Dosage: 5 MG, QD
     Route: 048
     Dates: start: 20210818
  8. FOLIC ACID [Concomitant]
     Active Substance: FOLIC ACID
     Indication: Liver disorder
     Dosage: 1 MG, QD
     Route: 048
     Dates: start: 20211021
  9. HUMULIN N [Concomitant]
     Active Substance: INSULIN HUMAN
     Indication: Diabetes mellitus
     Dosage: 8 DOSAGE FORM, BID
     Route: 058
     Dates: start: 20210703

REACTIONS (4)
  - Encephalopathy [Fatal]
  - Hyperglycaemia [Recovered/Resolved with Sequelae]
  - Metabolic encephalopathy [Recovered/Resolved]
  - Encephalopathy [Recovered/Resolved]

NARRATIVE: CASE EVENT DATE: 20210928
